FAERS Safety Report 24147484 (Version 2)
Quarter: 2024Q3

REPORT INFORMATION
  Report Type: Report from Study
  Country: PH (occurrence: None)
  Receive Date: 20240729
  Receipt Date: 20240819
  Transmission Date: 20241016
  Serious: Yes (Other)
  Sender: ASTRAZENECA
  Company Number: 2022A240649

PATIENT
  Sex: Female

DRUGS (4)
  1. TAGRISSO [Suspect]
     Active Substance: OSIMERTINIB
     Indication: Lung neoplasm malignant
     Route: 048
     Dates: start: 20220309, end: 20240526
  2. AMLODIPINE [Concomitant]
     Active Substance: AMLODIPINE BESYLATE
     Route: 065
     Dates: start: 2005
  3. LOSARTAN [Concomitant]
     Active Substance: LOSARTAN\LOSARTAN POTASSIUM
     Route: 065
     Dates: start: 201712
  4. TRIMETAZIDINE [Concomitant]
     Active Substance: TRIMETAZIDINE
     Route: 065
     Dates: start: 200804

REACTIONS (7)
  - Cardiac failure [Unknown]
  - Cardiomyopathy [Not Recovered/Not Resolved]
  - Ischaemia [Unknown]
  - Joint swelling [Unknown]
  - Skin discolouration [Unknown]
  - Chest discomfort [Unknown]
  - Wrong technique in product usage process [Unknown]
